FAERS Safety Report 25022195 (Version 2)
Quarter: 2025Q1

REPORT INFORMATION
  Report Type: Report from Study
  Country: US (occurrence: US)
  Receive Date: 20250228
  Receipt Date: 20250310
  Transmission Date: 20250408
  Serious: Yes (Other)
  Sender: TAKEDA
  Company Number: US-TAKEDA-2025TUS018497

PATIENT
  Sex: Female

DRUGS (1)
  1. VEDOLIZUMAB [Suspect]
     Active Substance: VEDOLIZUMAB
     Indication: Colitis ulcerative

REACTIONS (11)
  - Hydrocephalus [Unknown]
  - Epilepsy [Unknown]
  - Amino acid metabolism disorder [Unknown]
  - Disability [Unknown]
  - Developmental delay [Unknown]
  - Methylmalonic acidaemia [Unknown]
  - Dysphagia [Unknown]
  - Musculoskeletal deformity [Unknown]
  - Inappropriate schedule of product administration [Unknown]
  - Speech disorder [Unknown]
  - Poor venous access [Unknown]
